FAERS Safety Report 11448784 (Version 2)
Quarter: 2016Q4

REPORT INFORMATION
  Report Type: Spontaneous
  Country: CL (occurrence: CL)
  Receive Date: 20150902
  Receipt Date: 20161229
  Transmission Date: 20170206
  Serious: Yes (Life-Threatening, Other)
  Sender: FDA-Public Use
  Company Number: CL-ASTRAZENECA-2015SE82320

PATIENT
  Age: 17 Year
  Sex: Female
  Weight: 64.5 kg

DRUGS (2)
  1. FORXIGA [Suspect]
     Active Substance: DAPAGLIFLOZIN
     Indication: TYPE 1 DIABETES MELLITUS
     Route: 048
     Dates: start: 201408
  2. INSULIN PUMP [Concomitant]
     Active Substance: INSULIN NOS
     Dates: start: 201408

REACTIONS (3)
  - Diabetic ketoacidosis [Recovered/Resolved]
  - Product use issue [Unknown]
  - Off label use [Unknown]

NARRATIVE: CASE EVENT DATE: 201507
